APPROVED DRUG PRODUCT: METHYLPREDNISOLONE SODIUM SUCCINATE
Active Ingredient: METHYLPREDNISOLONE SODIUM SUCCINATE
Strength: EQ 125MG BASE/VIAL
Dosage Form/Route: INJECTABLE;INJECTION
Application: A081266 | Product #001
Applicant: TEVA PARENTERAL MEDICINES INC
Approved: Nov 30, 1992 | RLD: No | RS: No | Type: DISCN